FAERS Safety Report 23957985 (Version 2)
Quarter: 2024Q3

REPORT INFORMATION
  Report Type: Report from Study
  Country: US (occurrence: US)
  Receive Date: 20240610
  Receipt Date: 20240714
  Transmission Date: 20241017
  Serious: Yes (Hospitalization, Other)
  Sender: AIMMUNE
  Company Number: US-ZENPEP LLC-2024AIMT00903

PATIENT

DRUGS (2)
  1. ZENPEP [Suspect]
     Active Substance: PANCRELIPASE AMYLASE\PANCRELIPASE LIPASE\PANCRELIPASE PROTEASE
     Indication: Pancreatic failure
     Dosage: 40 000 UPS 100CT CAPSULES
     Route: 048
     Dates: start: 2023, end: 2023
  2. ZENPEP [Suspect]
     Active Substance: PANCRELIPASE AMYLASE\PANCRELIPASE LIPASE\PANCRELIPASE PROTEASE
     Dosage: 40 000 UPS 100CT CAPSULES, ONCE, LAST DOSE PRIOR EVENT
     Route: 048
     Dates: start: 2023, end: 2023

REACTIONS (4)
  - Systemic lupus erythematosus [Unknown]
  - Hospitalisation [Unknown]
  - Lung disorder [Unknown]
  - Drug ineffective [Unknown]
